FAERS Safety Report 23580586 (Version 1)
Quarter: 2024Q1

REPORT INFORMATION
  Report Type: Spontaneous
  Country: US (occurrence: None)
  Receive Date: 20240229
  Receipt Date: 20240229
  Transmission Date: 20240410
  Serious: Yes (unspecified)
  Sender: FDA-Public Use
  Company Number: None

PATIENT
  Age: 79 Year
  Sex: Female

DRUGS (1)
  1. BOTOX [Suspect]
     Active Substance: ONABOTULINUMTOXINA
     Indication: Tonic clonic movements
     Dosage: 100 UNITS EVERY 2 MONTHS INTO FACE?
     Route: 050

REACTIONS (4)
  - Paralysis [None]
  - Oral disorder [None]
  - Eyelid disorder [None]
  - Refusal of treatment by patient [None]
